FAERS Safety Report 9678350 (Version 1)
Quarter: 2013Q4

REPORT INFORMATION
  Report Type: Report from Study
  Country: US (occurrence: US)
  Receive Date: 20131108
  Receipt Date: 20131108
  Transmission Date: 20140711
  Serious: Yes (Hospitalization)
  Sender: FDA-Public Use
  Company Number: US-ACTELION-A-CH2013-90604

PATIENT
  Age: 30 Year
  Sex: Female

DRUGS (2)
  1. BOSENTAN [Suspect]
     Indication: PULMONARY ARTERIAL HYPERTENSION
     Dosage: 62.5 MG, BID
     Route: 048
     Dates: start: 20100309, end: 20100406
  2. BOSENTAN [Suspect]
     Dosage: 125 MG, BID
     Route: 048
     Dates: start: 20100406, end: 20131017

REACTIONS (1)
  - Biliary dyskinesia [Unknown]
